FAERS Safety Report 8765387 (Version 2)
Quarter: 2012Q4

REPORT INFORMATION
  Report Type: 
  Country: HU (occurrence: HU)
  Receive Date: 20120830
  Receipt Date: 20121016
  Transmission Date: 20130627
  Serious: Yes (Other)
  Sender: FDA-Public Use
  Company Number: HU-ELI_LILLY_AND_COMPANY-HU201208007180

PATIENT
  Age: 44 Year
  Sex: Female

DRUGS (2)
  1. ZYPADHERA [Suspect]
     Indication: SCHIZOPHRENIA, RESIDUAL TYPE
     Dosage: 300 mg, monthly (1/M)
     Route: 030
     Dates: start: 20101205, end: 20120717
  2. RIVOTRIL [Concomitant]
     Dosage: 0.5 mg, tid

REACTIONS (1)
  - Weight increased [Recovering/Resolving]
